FAERS Safety Report 12927987 (Version 1)
Quarter: 2016Q4

REPORT INFORMATION
  Report Type: Spontaneous
  Country: US (occurrence: US)
  Receive Date: 20161110
  Receipt Date: 20161110
  Transmission Date: 20170207
  Serious: Yes (Life-Threatening, Disabling, Other)
  Sender: FDA-Public Use
  Company Number: None

PATIENT
  Age: 36 Year
  Sex: Female
  Weight: 94.5 kg

DRUGS (28)
  1. BENADRYL [Concomitant]
     Active Substance: DIPHENHYDRAMINE HYDROCHLORIDE
  2. LYRICA [Concomitant]
     Active Substance: PREGABALIN
  3. HYDROCODONE + HYDROXYZINE [Concomitant]
  4. MEPERIDINE (DEMEROL) [Concomitant]
  5. NETI-POT--WARM WATER SALINE RINSE [Concomitant]
  6. NAMENDA [Concomitant]
     Active Substance: MEMANTINE HYDROCHLORIDE
  7. ZONISAMIDE. [Concomitant]
     Active Substance: ZONISAMIDE
  8. IPRATROPIUM BROMIDE SOL NEBULIZER (MIX W LEVALBUTEROL) [Concomitant]
  9. ALEVE [Suspect]
     Active Substance: NAPROXEN SODIUM
     Indication: PRODUCT USED FOR UNKNOWN INDICATION
     Dosage: ?          QUANTITY:1 CAPSULE(S);?
     Route: 048
     Dates: start: 20160201, end: 20160901
  10. QVAR [Concomitant]
     Active Substance: BECLOMETHASONE DIPROPIONATE
  11. HYDROXYZINE [Concomitant]
     Active Substance: HYDROXYZINE\HYDROXYZINE HYDROCHLORIDE
  12. FEMOTIDINE [Concomitant]
  13. BELSOMRA [Concomitant]
     Active Substance: SUVOREXANT
  14. ZYRTEC [Concomitant]
     Active Substance: CETIRIZINE HYDROCHLORIDE
  15. CLONAZEPAM. [Concomitant]
     Active Substance: CLONAZEPAM
  16. SEROQUEL [Concomitant]
     Active Substance: QUETIAPINE FUMARATE
  17. IMITREX [Concomitant]
     Active Substance: SUMATRIPTAN SUCCINATE
  18. XOPENEX NEBULIZER (LEVALBUTEROL) [Concomitant]
  19. CYMBALTA [Concomitant]
     Active Substance: DULOXETINE HYDROCHLORIDE
  20. DULERA [Concomitant]
     Active Substance: FORMOTEROL FUMARATE DIHYDRATE\MOMETASONE FUROATE
  21. SINGULAIR [Concomitant]
     Active Substance: MONTELUKAST SODIUM
  22. PLAQUENIL [Concomitant]
     Active Substance: HYDROXYCHLOROQUINE SULFATE
  23. XANAX [Concomitant]
     Active Substance: ALPRAZOLAM
  24. ZANAFLEX [Concomitant]
     Active Substance: TIZANIDINE HYDROCHLORIDE
  25. ZOFRAN [Concomitant]
     Active Substance: ONDANSETRON HYDROCHLORIDE
  26. GUAIFENESIN (MUCINEX) [Concomitant]
  27. IPRATROPIUM BROMIDE. [Concomitant]
     Active Substance: IPRATROPIUM BROMIDE
  28. PREDNISONE. [Concomitant]
     Active Substance: PREDNISONE

REACTIONS (1)
  - Stevens-Johnson syndrome [None]

NARRATIVE: CASE EVENT DATE: 20160901
